FAERS Safety Report 19136251 (Version 1)
Quarter: 2021Q2

REPORT INFORMATION
  Report Type: Spontaneous
  Country: US (occurrence: US)
  Receive Date: 20210414
  Receipt Date: 20210414
  Transmission Date: 20210717
  Serious: Yes (Hospitalization, Other)
  Sender: FDA-Public Use
  Company Number: US-SA-2021SA118695

PATIENT
  Age: 44 Year
  Sex: Female
  Weight: 47.6 kg

DRUGS (11)
  1. FERRLECIT [Suspect]
     Active Substance: SODIUM FERRIC GLUCONATE COMPLEX
     Indication: IRON DEFICIENCY ANAEMIA
     Dosage: 125 MG/WEEK (FOR TOTAL OF 4 WEEKS)
     Route: 041
     Dates: start: 200905, end: 200906
  2. FERRLECIT [Suspect]
     Active Substance: SODIUM FERRIC GLUCONATE COMPLEX
     Indication: HAEMORRHAGE
     Route: 041
     Dates: start: 200905, end: 200906
  3. FERRLECIT [Suspect]
     Active Substance: SODIUM FERRIC GLUCONATE COMPLEX
     Indication: HAEMORRHAGE
     Dosage: 62.5 MG/ML, 1X
     Route: 041
     Dates: start: 20090511, end: 20090511
  4. PRILOSEC [Concomitant]
     Active Substance: OMEPRAZOLE MAGNESIUM
     Dosage: UNK
  5. VENOFER [Suspect]
     Active Substance: IRON SUCROSE
     Indication: IRON DEFICIENCY ANAEMIA
     Dosage: RECEIVED FOR 5 CONSECUTIVE DAYS
     Route: 065
     Dates: start: 200908
  6. FERRLECIT [Suspect]
     Active Substance: SODIUM FERRIC GLUCONATE COMPLEX
     Indication: IRON DEFICIENCY ANAEMIA
     Dosage: 250 MG, OVER 2 HOURS DILUTED WITH NORMAL SALINE (AMOUNT UNKNOWN)
     Route: 041
     Dates: start: 20090511, end: 20090511
  7. DEXAMETHASONE. [Suspect]
     Active Substance: DEXAMETHASONE
     Indication: PREMEDICATION
     Dosage: DOSE: 2 MG WITH 100CC NORMAL SALINE
     Route: 042
     Dates: start: 200808, end: 200908
  8. FERRLECIT [Suspect]
     Active Substance: SODIUM FERRIC GLUCONATE COMPLEX
     Indication: HAEMORRHAGE
     Dosage: 62.5 MG/ML, 1X
     Route: 041
     Dates: start: 20090706, end: 20090706
  9. FERRLECIT [Suspect]
     Active Substance: SODIUM FERRIC GLUCONATE COMPLEX
     Indication: IRON DEFICIENCY ANAEMIA
     Dosage: 250 MG, OVER 2 HOURS WITH 1 LITER NORMAL SALINE
     Route: 041
     Dates: start: 20090706, end: 20090706
  10. SOLU?CORTEF [Suspect]
     Active Substance: HYDROCORTISONE SODIUM SUCCINATE
     Indication: PREMEDICATION
     Dosage: 100 MG, IV PIGGYBACK
     Route: 042
     Dates: start: 200905, end: 200907
  11. CITALOPRAM [Suspect]
     Active Substance: CITALOPRAM HYDROBROMIDE
     Indication: ANTIDEPRESSANT THERAPY
     Dosage: DOSE: UNK
     Dates: start: 20090910, end: 20090915

REACTIONS (38)
  - Hypoaesthesia [Recovered/Resolved]
  - Anal incontinence [Recovered/Resolved]
  - Abdominal pain [Recovered/Resolved]
  - Decreased appetite [Unknown]
  - Dyskinesia [Recovered/Resolved]
  - Dyspnoea [Recovered/Resolved]
  - Nausea [Recovered/Resolved]
  - Disorientation [Recovered/Resolved]
  - Dysgeusia [Recovered/Resolved]
  - Weight decreased [Unknown]
  - Dry mouth [Unknown]
  - Agitation [Unknown]
  - Logorrhoea [Unknown]
  - Loss of consciousness [Recovered/Resolved]
  - Dizziness [Recovered/Resolved]
  - Tremor [Recovered/Resolved]
  - Blood pressure systolic decreased [Recovered/Resolved]
  - Blood pressure systolic decreased [Unknown]
  - Steroid withdrawal syndrome [Unknown]
  - Vision blurred [Unknown]
  - Seizure [Unknown]
  - Rectal haemorrhage [Unknown]
  - Syncope [Recovered/Resolved]
  - Confusional state [Unknown]
  - Nervousness [Unknown]
  - Hypokalaemia [Unknown]
  - Fatigue [Unknown]
  - Feeling abnormal [Recovered/Resolved]
  - Injection site swelling [Recovered/Resolved]
  - Back pain [Recovered/Resolved]
  - Overdose [Recovered/Resolved]
  - Anaemia [Unknown]
  - Psychomotor hyperactivity [Unknown]
  - Hypotonia [Recovered/Resolved]
  - Insomnia [Unknown]
  - Diarrhoea [Unknown]
  - Hypotension [Recovered/Resolved]
  - Vomiting [Recovered/Resolved]

NARRATIVE: CASE EVENT DATE: 2009
